FAERS Safety Report 9524869 (Version 1)
Quarter: 2013Q3

REPORT INFORMATION
  Report Type: Spontaneous
  Country: US (occurrence: None)
  Receive Date: 20130912
  Receipt Date: 20130912
  Transmission Date: 20140515
  Serious: No
  Sender: FDA-Public Use
  Company Number: None

PATIENT
  Age: 46 Year
  Sex: Female
  Weight: 97.98 kg

DRUGS (1)
  1. BELVIQ [Suspect]
     Indication: WEIGHT DECREASED
     Dosage: ONE DOSE TWICE DAILY TAKEN BY MOUTH

REACTIONS (2)
  - Headache [None]
  - Drug ineffective [None]
